FAERS Safety Report 5620923-5 (Version None)
Quarter: 2008Q1

REPORT INFORMATION
  Report Type: 
  Country: None (occurrence: None)
  Receive Date: 20080208
  Receipt Date: 20080129
  Transmission Date: 20080703
  Serious: Yes (Hospitalization, Other)
  Sender: FDA-Public Use
  Company Number: US-PFIZER INC-2008009246

PATIENT
  Sex: Female
  Weight: 67.1 kg

DRUGS (4)
  1. NARDIL [Suspect]
  2. XANAX [Suspect]
  3. TYLENOL (CAPLET) [Concomitant]
  4. KLONOPIN [Concomitant]

REACTIONS (4)
  - DRUG INEFFECTIVE [None]
  - RENAL IMPAIRMENT [None]
  - SUICIDAL IDEATION [None]
  - URINARY TRACT INFECTION [None]
